FAERS Safety Report 6885392-6 (Version None)
Quarter: 2010Q3

REPORT INFORMATION
  Report Type: 
  Country: None (occurrence: None)
  Receive Date: 20100729
  Receipt Date: 20081104
  Transmission Date: 20110219
  Serious: Yes (Other)
  Sender: FDA-Public Use
  Company Number: US-PFIZER INC-2008031454

PATIENT
  Sex: Female
  Weight: 77 kg

DRUGS (4)
  1. CELEBREX [Suspect]
     Indication: ARTHRALGIA
  2. CELEBREX [Suspect]
     Indication: INFLAMMATION
  3. CELEBREX [Suspect]
     Indication: PAIN IN EXTREMITY
  4. ZOLOFT [Concomitant]

REACTIONS (1)
  - RASH PRURITIC [None]
